FAERS Safety Report 10543557 (Version 1)
Quarter: 2014Q4

REPORT INFORMATION
  Report Type: Spontaneous
  Country: HR (occurrence: HR)
  Receive Date: 20141027
  Receipt Date: 20141027
  Transmission Date: 20150529
  Serious: Yes (Hospitalization, Other)
  Sender: FDA-Public Use
  Company Number: HR-WATSON-2014-22481

PATIENT
  Age: 56 Year
  Sex: Male

DRUGS (1)
  1. ISOSORBIDE DINITRATE (UNKNOWN) [Suspect]
     Active Substance: ISOSORBIDE DINITRATE
     Indication: PRODUCT USED FOR UNKNOWN INDICATION
     Dosage: 5 MG, SINGLE
     Route: 060

REACTIONS (2)
  - Subclavian steal syndrome [Recovered/Resolved with Sequelae]
  - Condition aggravated [Unknown]
